FAERS Safety Report 8264999 (Version 3)
Quarter: 2014Q2

REPORT INFORMATION
  Report Type: Report from Study
  Country: HU (occurrence: HU)
  Receive Date: 20111128
  Receipt Date: 20140618
  Transmission Date: 20141212
  Serious: Yes (Death, Other)
  Sender: FDA-Public Use
  Company Number: HU-CELGENEUS-076-21880-11112194

PATIENT
  Age: 76 Year
  Sex: Female
  Weight: 56 kg

DRUGS (25)
  1. REVLIMID [Suspect]
     Indication: PLASMA CELL MYELOMA
     Dosage: 25 MILLIGRAM
     Route: 048
     Dates: start: 20110804, end: 20110824
  2. REVLIMID [Suspect]
     Dosage: 25 MILLIGRAM
     Route: 048
     Dates: start: 20110901, end: 20110921
  3. REVLIMID [Suspect]
     Dosage: 25 MILLIGRAM
     Route: 048
     Dates: start: 20111027, end: 20111108
  4. DEXAMETHASONE [Suspect]
     Indication: PLASMA CELL MYELOMA
     Route: 065
     Dates: start: 20110804, end: 20111103
  5. DEXAMETHASONE [Suspect]
     Route: 065
     Dates: start: 20111027, end: 20111103
  6. ARANESP [Concomitant]
     Indication: ANAEMIA
     Dosage: 23.8095 MICROGRAM
     Route: 058
     Dates: start: 20111027
  7. CALCIUM CITRATE [Concomitant]
     Indication: OSTEOPOROSIS
     Dosage: 1000 MILLIGRAM
     Route: 048
     Dates: start: 20110804
  8. CALCIUM CITRATE [Concomitant]
     Indication: MINERAL SUPPLEMENTATION
  9. CITALOPRAM [Concomitant]
     Indication: DEPRESSION
     Dosage: 10 MILLIGRAM
     Route: 048
     Dates: start: 20111013
  10. COLECALCIFEROL [Concomitant]
     Indication: OSTEOPOROSIS
     Dosage: 400 MILLIGRAM
     Route: 048
     Dates: start: 20110804
  11. CONCOR [Concomitant]
     Indication: ATRIAL FIBRILLATION
     Dosage: 5 MILLIGRAM
     Route: 048
     Dates: start: 201008
  12. CONCOR [Concomitant]
     Dosage: 2.5 MILLIGRAM
     Route: 048
     Dates: start: 201008, end: 20111013
  13. CONTRAMAL [Concomitant]
     Indication: ANALGESIC THERAPY
     Dosage: 300 MILLIGRAM
     Route: 048
     Dates: start: 20111027
  14. FUROSEMIDE [Concomitant]
     Indication: ATRIAL FIBRILLATION
     Dosage: 40 MILLIGRAM
     Route: 048
     Dates: start: 20100924
  15. HERPESIN [Concomitant]
     Indication: ANTIVIRAL PROPHYLAXIS
     Dosage: 800 MILLIGRAM
     Route: 048
     Dates: start: 20110804
  16. KALDYUM [Concomitant]
     Indication: ATRIAL FIBRILLATION
     Dosage: 600 MILLIGRAM
     Route: 048
     Dates: start: 20100924
  17. REFLUXON [Concomitant]
     Indication: GASTRITIS PROPHYLAXIS
     Dosage: 15 MILLIGRAM
     Route: 048
     Dates: start: 20110804
  18. SYNCUMAR [Concomitant]
     Indication: ATRIAL FIBRILLATION
     Dosage: .5 MILLIGRAM
     Route: 048
     Dates: start: 201104
  19. SYNCUMAR [Concomitant]
     Indication: PULMONARY EMBOLISM
     Dosage: .5 MILLIGRAM
     Route: 048
     Dates: start: 20110804
  20. SYNCUMAR [Concomitant]
     Indication: ANTICOAGULANT THERAPY
  21. ZOMETA [Concomitant]
     Indication: ANALGESIC THERAPY
     Dosage: .1333 MILLIGRAM
     Route: 041
     Dates: start: 20110804
  22. ZOMETA [Concomitant]
     Indication: PROPHYLAXIS
     Route: 041
  23. CALCITONIN [Concomitant]
     Indication: HYPERCALCAEMIA
     Route: 065
     Dates: start: 201111, end: 201111
  24. FENTANYL [Concomitant]
     Indication: BONE PAIN
     Route: 061
     Dates: start: 201111, end: 201111
  25. VITAMIN D3 [Concomitant]
     Indication: PRODUCT USED FOR UNKNOWN INDICATION
     Route: 048

REACTIONS (1)
  - Sepsis [Fatal]
